FAERS Safety Report 16252572 (Version 1)
Quarter: 2019Q2

REPORT INFORMATION
  Report Type: Spontaneous
  Country: US (occurrence: US)
  Receive Date: 20190326
  Receipt Date: 20190326
  Transmission Date: 20190711
  Serious: No
  Sender: FDA-Public Use
  Company Number: None

PATIENT
  Age: 4 Day
  Sex: Female

DRUGS (1)
  1. VITAMIN K [Suspect]
     Active Substance: PHYTONADIONE
     Dosage: ?          OTHER ROUTE:NEEDLE/SYRINGE (NOT SPECIFIED FURTHER) -?

REACTIONS (5)
  - Pyrexia [None]
  - Tenderness [None]
  - Peripheral swelling [None]
  - Rash generalised [None]
  - Urticaria [None]

NARRATIVE: CASE EVENT DATE: 20171216
